FAERS Safety Report 21456769 (Version 1)
Quarter: 2022Q4

REPORT INFORMATION
  Report Type: Spontaneous
  Country: CA (occurrence: CA)
  Receive Date: 20221014
  Receipt Date: 20221014
  Transmission Date: 20230113
  Serious: Yes (Life-Threatening, Hospitalization, Other)
  Sender: FDA-Public Use
  Company Number: CA-SUN PHARMACEUTICAL INDUSTRIES LTD-2022R1-358895

PATIENT
  Age: 5 Decade

DRUGS (1)
  1. VALPROIC ACID [Suspect]
     Active Substance: VALPROIC ACID
     Indication: Generalised tonic-clonic seizure
     Dosage: 500 MILLIGRAM, BID
     Route: 048

REACTIONS (7)
  - Toxicity to various agents [Unknown]
  - Electrolyte imbalance [Recovered/Resolved]
  - Generalised oedema [Recovered/Resolved]
  - Colitis [Recovered/Resolved]
  - Diverticulum intestinal [Recovered/Resolved]
  - Condition aggravated [Unknown]
  - Drug level increased [Recovering/Resolving]
